FAERS Safety Report 16886793 (Version 2)
Quarter: 2019Q4

REPORT INFORMATION
  Report Type: Report from Study
  Country: TR (occurrence: TR)
  Receive Date: 20191004
  Receipt Date: 20191007
  Transmission Date: 20200122
  Serious: Yes (Other)
  Sender: FDA-Public Use
  Company Number: TR-SHIRE-TR201903172

PATIENT

DRUGS (40)
  1. PEGYLATED COAGULATION FACTOR VIII [Suspect]
     Active Substance: ANTIHEMOPHILIC FACTOR, PEGYLATED (MW 20000) HUMAN SEQUENCE RECOMBINANT
     Dosage: 506 INTERNATIONAL UNIT
     Route: 065
     Dates: start: 20181226
  2. PEGYLATED COAGULATION FACTOR VIII [Suspect]
     Active Substance: ANTIHEMOPHILIC FACTOR, PEGYLATED (MW 20000) HUMAN SEQUENCE RECOMBINANT
     Dosage: 506 INTERNATIONAL UNIT
     Route: 065
     Dates: start: 20181229, end: 20181231
  3. PEGYLATED COAGULATION FACTOR VIII [Suspect]
     Active Substance: ANTIHEMOPHILIC FACTOR, PEGYLATED (MW 20000) HUMAN SEQUENCE RECOMBINANT
     Dosage: 506 INTERNATIONAL UNIT
     Route: 065
     Dates: start: 20190110
  4. PEGYLATED COAGULATION FACTOR VIII [Suspect]
     Active Substance: ANTIHEMOPHILIC FACTOR, PEGYLATED (MW 20000) HUMAN SEQUENCE RECOMBINANT
     Dosage: 506 INTERNATIONAL UNIT, ONE DOSE
     Route: 065
     Dates: start: 20190123, end: 20190123
  5. HEXAXIM [Concomitant]
     Indication: IMMUNISATION
  6. TROSYD [Concomitant]
     Indication: RASH
  7. PEGYLATED COAGULATION FACTOR VIII [Suspect]
     Active Substance: ANTIHEMOPHILIC FACTOR, PEGYLATED (MW 20000) HUMAN SEQUENCE RECOMBINANT
     Dosage: 506 INTERNATIONAL UNIT
     Route: 058
     Dates: start: 20181212, end: 20181212
  8. PEGYLATED COAGULATION FACTOR VIII [Suspect]
     Active Substance: ANTIHEMOPHILIC FACTOR, PEGYLATED (MW 20000) HUMAN SEQUENCE RECOMBINANT
     Dosage: 506 INTERNATIONAL UNIT, ONE DOSE
     Route: 065
     Dates: start: 20190107, end: 20190107
  9. CALPOL [Concomitant]
     Active Substance: ACETAMINOPHEN
     Indication: EAR INFECTION
  10. ROTATEQ [Concomitant]
     Active Substance: HUMAN ROTAVIRUS A TYPE G1P7(5) STRAIN WI79 LIVE ANTIGEN\HUMAN ROTAVIRUS A TYPE G2P7(5) STRAIN SC2 LIVE ANTIGEN\HUMAN ROTAVIRUS A TYPE G3P7(5) STRAIN WI78 LIVE ANTIGEN\HUMAN ROTAVIRUS A TYPE G4P7(5) STRAIN BRB LIVE ANTIGEN\HUMAN ROTAVIRUS A TYPE G6P1A(8) STRAIN WI79 LIVE ANTIGEN
     Indication: IMMUNISATION
  11. IBUFEN [Concomitant]
     Indication: PYREXIA
  12. AUGMENTIN [Concomitant]
     Active Substance: AMOXICILLIN\CLAVULANATE POTASSIUM
     Indication: EAR INFECTION
  13. PEGYLATED COAGULATION FACTOR VIII [Suspect]
     Active Substance: ANTIHEMOPHILIC FACTOR, PEGYLATED (MW 20000) HUMAN SEQUENCE RECOMBINANT
     Indication: PROPHYLAXIS
     Dosage: 370 INTERNATIONAL UNIT
     Route: 065
     Dates: start: 20180521
  14. PEGYLATED COAGULATION FACTOR VIII [Suspect]
     Active Substance: ANTIHEMOPHILIC FACTOR, PEGYLATED (MW 20000) HUMAN SEQUENCE RECOMBINANT
     Dosage: 506 UNITS
     Route: 065
     Dates: start: 20181219
  15. CALPOL [Concomitant]
     Active Substance: ACETAMINOPHEN
     Indication: PYREXIA
  16. PRIORIX [Concomitant]
     Active Substance: MEASLES-MUMPS-RUBELLA VIRUS VACCINE
     Indication: MEASLES IMMUNISATION
  17. PRIORIX [Concomitant]
     Active Substance: MEASLES-MUMPS-RUBELLA VIRUS VACCINE
     Indication: MUMPS IMMUNISATION
  18. PEGYLATED COAGULATION FACTOR VIII [Suspect]
     Active Substance: ANTIHEMOPHILIC FACTOR, PEGYLATED (MW 20000) HUMAN SEQUENCE RECOMBINANT
     Dosage: 506 INTERNATIONAL UNIT
     Route: 065
     Dates: start: 20190117
  19. PEGYLATED COAGULATION FACTOR VIII [Suspect]
     Active Substance: ANTIHEMOPHILIC FACTOR, PEGYLATED (MW 20000) HUMAN SEQUENCE RECOMBINANT
     Dosage: 370 INTERNATIONAL UNIT
     Route: 065
     Dates: start: 20180404, end: 20180404
  20. PEGYLATED COAGULATION FACTOR VIII [Suspect]
     Active Substance: ANTIHEMOPHILIC FACTOR, PEGYLATED (MW 20000) HUMAN SEQUENCE RECOMBINANT
     Dosage: 506 INTERNATIONAL UNIT
     Route: 065
     Dates: start: 20181016, end: 20181016
  21. HIRUDOID FORTE [Concomitant]
     Indication: FACTOR VIII DEFICIENCY
  22. TRANSAMINE [Concomitant]
     Indication: FACTOR VIII DEFICIENCY
  23. PREVENAR [Concomitant]
     Active Substance: PNEUMOCOCCAL 7-VALENT CONJUGATE VACCINE (DIPHTHERIA CRM197 PROTEIN)
     Indication: IMMUNISATION
  24. DESITIN [Concomitant]
     Active Substance: ZINC OXIDE
     Indication: RASH
  25. PEGYLATED COAGULATION FACTOR VIII [Suspect]
     Active Substance: ANTIHEMOPHILIC FACTOR, PEGYLATED (MW 20000) HUMAN SEQUENCE RECOMBINANT
     Indication: HAEMORRHAGE
     Dosage: 493 INTERNATIONAL UNIT
     Route: 065
     Dates: start: 20180723
  26. PEGYLATED COAGULATION FACTOR VIII [Suspect]
     Active Substance: ANTIHEMOPHILIC FACTOR, PEGYLATED (MW 20000) HUMAN SEQUENCE RECOMBINANT
     Indication: FACTOR VIII DEFICIENCY
     Dosage: 493 INTERNATIONAL UNIT
     Route: 065
     Dates: start: 20181015
  27. TRANSAMINE [Concomitant]
     Indication: HAEMORRHAGE
  28. CALPOL [Concomitant]
     Active Substance: ACETAMINOPHEN
     Indication: TOOTHACHE
  29. CALPOL [Concomitant]
     Active Substance: ACETAMINOPHEN
     Indication: AGITATION
  30. PRIORIX [Concomitant]
     Active Substance: MEASLES-MUMPS-RUBELLA VIRUS VACCINE
     Indication: RUBELLA IMMUNISATION
  31. PEGYLATED COAGULATION FACTOR VIII [Suspect]
     Active Substance: ANTIHEMOPHILIC FACTOR, PEGYLATED (MW 20000) HUMAN SEQUENCE RECOMBINANT
     Dosage: 506 INTERNATIONAL UNIT
     Route: 065
     Dates: start: 20181114
  32. PEGYLATED COAGULATION FACTOR VIII [Suspect]
     Active Substance: ANTIHEMOPHILIC FACTOR, PEGYLATED (MW 20000) HUMAN SEQUENCE RECOMBINANT
     Dosage: 506 INTERNATIONAL UNIT
     Route: 065
     Dates: start: 20181121
  33. PEGYLATED COAGULATION FACTOR VIII [Suspect]
     Active Substance: ANTIHEMOPHILIC FACTOR, PEGYLATED (MW 20000) HUMAN SEQUENCE RECOMBINANT
     Dosage: 506 INTERNATIONAL UNIT
     Route: 065
     Dates: start: 20181205
  34. PEGYLATED COAGULATION FACTOR VIII [Suspect]
     Active Substance: ANTIHEMOPHILIC FACTOR, PEGYLATED (MW 20000) HUMAN SEQUENCE RECOMBINANT
     Dosage: 506 INTERNATIONAL UNIT
     Route: 065
     Dates: start: 20190114
  35. HAMETAN [Concomitant]
     Indication: RASH
  36. PEGYLATED COAGULATION FACTOR VIII [Suspect]
     Active Substance: ANTIHEMOPHILIC FACTOR, PEGYLATED (MW 20000) HUMAN SEQUENCE RECOMBINANT
     Dosage: 506 INTERNATIONAL UNIT
     Route: 065
     Dates: start: 20181128
  37. PEGYLATED COAGULATION FACTOR VIII [Suspect]
     Active Substance: ANTIHEMOPHILIC FACTOR, PEGYLATED (MW 20000) HUMAN SEQUENCE RECOMBINANT
     Dosage: 506 INTERNATIONAL UNIT
     Route: 065
     Dates: start: 20181208
  38. PEGYLATED COAGULATION FACTOR VIII [Suspect]
     Active Substance: ANTIHEMOPHILIC FACTOR, PEGYLATED (MW 20000) HUMAN SEQUENCE RECOMBINANT
     Dosage: 506 INTERNATIONAL UNIT
     Route: 065
     Dates: start: 20190103
  39. PEGYLATED COAGULATION FACTOR VIII [Suspect]
     Active Substance: ANTIHEMOPHILIC FACTOR, PEGYLATED (MW 20000) HUMAN SEQUENCE RECOMBINANT
     Dosage: 506 INTERNATIONAL UNIT
     Route: 065
     Dates: start: 20190123
  40. FERRUM [Concomitant]
     Active Substance: FERROUS FUMARATE
     Indication: PROPHYLAXIS

REACTIONS (1)
  - Inhibiting antibodies positive [Recovering/Resolving]

NARRATIVE: CASE EVENT DATE: 20190128
